FAERS Safety Report 18264579 (Version 1)
Quarter: 2020Q3

REPORT INFORMATION
  Report Type: Spontaneous
  Country: US (occurrence: US)
  Receive Date: 20200914
  Receipt Date: 20200914
  Transmission Date: 20201103
  Serious: Yes (Hospitalization)
  Sender: FDA-Public Use
  Company Number: US-GILEAD-2020-0494799

PATIENT
  Age: 18 Year
  Sex: Male
  Weight: 102.2 kg

DRUGS (8)
  1. DEXAMETHASONE. [Concomitant]
     Active Substance: DEXAMETHASONE
     Dosage: 6 MG, QD
     Dates: start: 20200903, end: 20200906
  2. ENOXAPARIN [Concomitant]
     Active Substance: ENOXAPARIN
     Dosage: 40 MG, QD
     Dates: start: 20200902, end: 20200905
  3. REMDESIVIR. [Suspect]
     Active Substance: REMDESIVIR
     Indication: COVID-19
     Dosage: 200 MG, ONCE
     Route: 042
     Dates: start: 20200902, end: 20200902
  4. LORAZEPAM. [Concomitant]
     Active Substance: LORAZEPAM
     Dosage: 1 MG, ONCE
     Dates: start: 20200905, end: 20200905
  5. MELATONIN [Concomitant]
     Active Substance: MELATONIN
     Dosage: 3 MG, QD
     Dates: start: 20200903, end: 20200905
  6. ONDASETRON [ONDANSETRON] [Concomitant]
     Dosage: 4 MG, QID
     Dates: start: 20200903, end: 20200904
  7. REMDESIVIR. [Suspect]
     Active Substance: REMDESIVIR
     Dosage: 100 MG
     Route: 042
     Dates: start: 20200903, end: 20200905
  8. ACETAMINOPHEN. [Concomitant]
     Active Substance: ACETAMINOPHEN
     Dosage: 650 MG, PRN
     Dates: start: 20200903, end: 20200905

REACTIONS (1)
  - Alanine aminotransferase increased [Recovered/Resolved]

NARRATIVE: CASE EVENT DATE: 20200905
